FAERS Safety Report 21169744 (Version 1)
Quarter: 2022Q3

REPORT INFORMATION
  Report Type: Spontaneous
  Country: GB (occurrence: GB)
  Receive Date: 20220804
  Receipt Date: 20220804
  Transmission Date: 20221027
  Serious: No
  Sender: FDA-Public Use
  Company Number: None

PATIENT
  Age: 29 Year
  Sex: Male

DRUGS (1)
  1. PREGABALIN [Suspect]
     Active Substance: PREGABALIN
     Indication: Back pain
     Dosage: 75 MILLIGRAM, BID
     Route: 065
     Dates: start: 20220525, end: 20220607

REACTIONS (2)
  - Dizziness [Recovered/Resolved]
  - Vomiting [Recovered/Resolved]
